FAERS Safety Report 8953703 (Version 1)
Quarter: 2012Q4

REPORT INFORMATION
  Report Type: 
  Country: DE (occurrence: DE)
  Receive Date: 20121206
  Receipt Date: 20121206
  Transmission Date: 20130627
  Serious: Yes (Other)
  Sender: FDA-Public Use
  Company Number: DE-UCBSA-072432

PATIENT
  Age: 79 Year
  Sex: Female
  Weight: 70 kg

DRUGS (3)
  1. KEPPRA [Suspect]
     Dosage: TOTAL AMOUNT : 500 MG
     Route: 048
     Dates: start: 20121201
  2. CLOZAPINE [Suspect]
     Dosage: TOTAL AMOUNT : 100 MG
     Route: 048
     Dates: start: 20121201
  3. CARBAMAZEPINE [Suspect]
     Dosage: TOTAL AMOUNT: 300 MG
     Route: 048
     Dates: start: 20121201

REACTIONS (6)
  - Accidental exposure to product [Unknown]
  - Sopor [Unknown]
  - Hypertension [Unknown]
  - Agitation [Unknown]
  - Tachycardia [Unknown]
  - Somnolence [Unknown]
